FAERS Safety Report 4821211-7 (Version None)
Quarter: 2005Q4

REPORT INFORMATION
  Report Type: 
  Country: None (occurrence: None)
  Receive Date: 20051107
  Receipt Date: 20051026
  Transmission Date: 20060501
  Serious: Yes (Death, Other)
  Sender: FDA-Public Use
  Company Number: GB-JNJFOC-20051005873

PATIENT
  Age: 63 Year
  Sex: Male

DRUGS (1)
  1. REOPRO [Suspect]
     Indication: CORONARY ARTERY SURGERY
     Dosage: GIVEN OVER ONE HOUR AFTER THROMBOLYSIS
     Route: 042

REACTIONS (2)
  - CARDIAC ARREST [None]
  - SWOLLEN TONGUE [None]
